FAERS Safety Report 18679351 (Version 1)
Quarter: 2020Q4

REPORT INFORMATION
  Report Type: Report from Study
  Country: JP (occurrence: JP)
  Receive Date: 20201229
  Receipt Date: 20201229
  Transmission Date: 20210114
  Serious: Yes (Hospitalization)
  Sender: FDA-Public Use
  Company Number: JP-SEAGEN-2020SGN04846

PATIENT
  Age: 72 Year
  Sex: Male
  Weight: 65.3 kg

DRUGS (9)
  1. AMLODIPINE [AMLODIPINE BESILATE] [Concomitant]
     Active Substance: AMLODIPINE BESYLATE
     Indication: HYPERTENSION
     Dosage: 5 MILLIGRAM, QD
     Route: 048
     Dates: start: 20181002
  2. LANSOPRAZOLE. [Concomitant]
     Active Substance: LANSOPRAZOLE
     Indication: PROPHYLAXIS
     Dosage: 30 MILLIGRAM, QD
     Route: 048
     Dates: start: 20170811
  3. GENTAMICIN SULFATE. [Concomitant]
     Active Substance: GENTAMICIN SULFATE
     Indication: CUTANEOUS T-CELL LYMPHOMA
     Dosage: UNK, QD
     Route: 065
     Dates: start: 20171226
  4. TRAMAL [Concomitant]
     Active Substance: TRAMADOL
     Indication: CUTANEOUS T-CELL LYMPHOMA
     Dosage: 25 MILLIGRAM, QID
     Route: 048
     Dates: start: 20191212
  5. PARACETAMOL [Concomitant]
     Active Substance: ACETAMINOPHEN
     Indication: CUTANEOUS T-CELL LYMPHOMA
     Dosage: 600 MILLIGRAM, TID
     Route: 048
     Dates: start: 20200227
  6. HIRUDOID [Concomitant]
     Active Substance: GLYCOSAMINOGLYCANS
     Indication: CUTANEOUS T-CELL LYMPHOMA
     Dosage: UNK UNK, QD
     Route: 065
     Dates: start: 20190109
  7. SODIUM BICARBONATE. [Concomitant]
     Active Substance: SODIUM BICARBONATE
     Indication: CONSTIPATION
     Dosage: 1 GRAM, BID
     Route: 048
     Dates: start: 20200225
  8. BRENTUXIMAB VEDOTIN [Suspect]
     Active Substance: BRENTUXIMAB VEDOTIN
     Indication: CUTANEOUS T-CELL LYMPHOMA
     Dosage: 1.8 MG/KG, Q3WEEKS
     Route: 065
     Dates: start: 20200116, end: 20200924
  9. RINDERON VG [Concomitant]
     Active Substance: BETAMETHASONE VALERATE\GENTAMICIN SULFATE
     Indication: CUTANEOUS T-CELL LYMPHOMA
     Dosage: UNK, QD
     Route: 065
     Dates: start: 20191216

REACTIONS (1)
  - Lung disorder [Recovering/Resolving]

NARRATIVE: CASE EVENT DATE: 20201020
